FAERS Safety Report 6255103-6 (Version None)
Quarter: 2009Q3

REPORT INFORMATION
  Report Type: 
  Country: None (occurrence: None)
  Receive Date: 20090702
  Receipt Date: 20090622
  Transmission Date: 20100115
  Serious: Yes (Other)
  Sender: FDA-Public Use
  Company Number: US-PFIZER INC-2009207146

PATIENT
  Weight: 109.76 kg

DRUGS (4)
  1. DEPO-MEDROL [Suspect]
     Indication: BACK PAIN
  2. KLONOPIN [Concomitant]
  3. CRESTOR [Concomitant]
  4. TRICOR [Concomitant]

REACTIONS (4)
  - ANAPHYLACTIC REACTION [None]
  - ASTHENIA [None]
  - DIZZINESS [None]
  - HYPOTENSION [None]
